FAERS Safety Report 8512389-2 (Version None)
Quarter: 2012Q3

REPORT INFORMATION
  Report Type: 
  Country: None (occurrence: None)
  Receive Date: 20120716
  Receipt Date: 20120705
  Transmission Date: 20120928
  Serious: Yes (Hospitalization)
  Sender: FDA-Public Use
  Company Number: JP-VERTEX PHARMACEUTICALS INC.-AE-2012-010089

PATIENT
  Age: 68 Year
  Sex: Female

DRUGS (11)
  1. TELAVIC (TELAPREVIR) [Suspect]
     Indication: HEPATITIS C
     Route: 048
     Dates: start: 20120530, end: 20120602
  2. TELAVIC (TELAPREVIR) [Suspect]
     Route: 048
     Dates: start: 20120619, end: 20120704
  3. ALDACTONE [Concomitant]
     Route: 048
     Dates: end: 20120622
  4. TELAVIC (TELAPREVIR) [Suspect]
     Route: 048
     Dates: start: 20120604, end: 20120619
  5. REBETOL [Concomitant]
     Indication: HEPATITIS C
     Route: 048
     Dates: start: 20120530, end: 20120704
  6. LOSARTAN POTASSIUM [Concomitant]
     Route: 048
  7. GLYCYRON [Concomitant]
     Route: 048
  8. URSO 250 [Concomitant]
     Route: 048
  9. CELECTOL [Concomitant]
     Route: 048
  10. PEG-INTRON [Concomitant]
     Indication: HEPATITIS C
     Route: 058
     Dates: start: 20120530, end: 20120704
  11. ADALAT CC [Concomitant]
     Route: 048
     Dates: start: 20120530

REACTIONS (1)
  - RENAL IMPAIRMENT [None]
